FAERS Safety Report 6188723-8 (Version None)
Quarter: 2009Q2

REPORT INFORMATION
  Report Type: 
  Country: None (occurrence: None)
  Receive Date: 20090511
  Receipt Date: 20090511
  Transmission Date: 20091009
  Serious: Yes (Life-Threatening, Other)
  Sender: FDA-Public Use
  Company Number: None

PATIENT
  Age: 23 Year
  Sex: Female
  Weight: 68.0396 kg

DRUGS (2)
  1. YAZ [Suspect]
     Indication: CONTRACEPTION
     Dates: start: 20040501, end: 20081125
  2. YAZ [Suspect]
     Indication: PREMENSTRUAL SYNDROME
     Dates: start: 20040501, end: 20081125

REACTIONS (1)
  - DEEP VEIN THROMBOSIS [None]
